FAERS Safety Report 6072540-3 (Version None)
Quarter: 2009Q1

REPORT INFORMATION
  Report Type: 
  Country: None (occurrence: None)
  Receive Date: 20090210
  Receipt Date: 20090202
  Transmission Date: 20090719
  Serious: Yes (Other)
  Sender: FDA-Public Use
  Company Number: US-AVENTIS-200910906US

PATIENT
  Sex: Female

DRUGS (4)
  1. LANTUS [Suspect]
     Route: 058
     Dates: start: 20040101
  2. APIDRA [Suspect]
     Dosage: DOSE: SLIDING SCALE
     Route: 051
     Dates: start: 20040101
  3. OPTICLIK GREY [Suspect]
     Dates: start: 20040101
  4. OPTICLIK (INSULIN INJECTION PEN) [Suspect]
     Dates: start: 20040101

REACTIONS (1)
  - BLINDNESS [None]
